FAERS Safety Report 5379020-9 (Version None)
Quarter: 2007Q3

REPORT INFORMATION
  Report Type: 
  Country: None (occurrence: None)
  Receive Date: 20070705
  Receipt Date: 20070626
  Transmission Date: 20080115
  Serious: Yes (Hospitalization, Disabling, Other)
  Sender: FDA-Public Use
  Company Number: AU-BRISTOL-MYERS SQUIBB COMPANY-13793450

PATIENT
  Age: 67 Year
  Sex: Male
  Weight: 92 kg

DRUGS (15)
  1. BARACLUDE [Suspect]
     Indication: HEPATITIS B VIRUS
     Dosage: TAKEN EVERY 2-3 DAYS.
     Route: 048
     Dates: start: 20070201, end: 20070501
  2. HUMALOG [Concomitant]
  3. ATENOLOL [Concomitant]
  4. LERCANIDIPINE [Concomitant]
  5. CANDESARTAN CILEXETIL [Concomitant]
  6. PERINDOPRIL [Concomitant]
  7. FRUSEMIDE [Concomitant]
  8. ADEFOVIR DIPIVOXIL KIT [Concomitant]
  9. LAMIVUDINE [Concomitant]
  10. ASPIRIN [Concomitant]
  11. ATORVASTATIN [Concomitant]
  12. DARBEPOETIN ALFA [Concomitant]
     Dates: start: 20070101
  13. IRON POLYMALTOSE [Concomitant]
     Dates: start: 20051101
  14. SORBITOL [Concomitant]
  15. ENTECAVIR [Concomitant]
     Dates: start: 20070201

REACTIONS (1)
  - RENAL FAILURE [None]
